FAERS Safety Report 22637238 (Version 1)
Quarter: 2023Q2

REPORT INFORMATION
  Report Type: Spontaneous
  Country: US (occurrence: None)
  Receive Date: 20230622
  Receipt Date: 20230622
  Transmission Date: 20230721
  Serious: Yes (Hospitalization)
  Sender: FDA-Public Use
  Company Number: None

PATIENT
  Sex: Female

DRUGS (1)
  1. EVEROLIMUS [Suspect]
     Active Substance: EVEROLIMUS
     Indication: Lung neoplasm malignant
     Dosage: 10MG DAILY ORAL
     Route: 048
     Dates: start: 20220713

REACTIONS (2)
  - Vomiting [None]
  - Biliary tract disorder [None]
